FAERS Safety Report 5122721-8 (Version None)
Quarter: 2006Q4

REPORT INFORMATION
  Report Type: 
  Country: None (occurrence: None)
  Receive Date: 20061009
  Receipt Date: 20060926
  Transmission Date: 20070319
  Serious: Yes (Hospitalization)
  Sender: FDA-Public Use
  Company Number: US-AMGEN-US194925

PATIENT
  Sex: Female

DRUGS (1)
  1. ENBREL [Suspect]
     Indication: AUTOIMMUNE DISORDER
     Route: 058
     Dates: start: 20050701

REACTIONS (3)
  - INFLUENZA [None]
  - KNEE ARTHROPLASTY [None]
  - TIBIA FRACTURE [None]
